FAERS Safety Report 14194399 (Version 1)
Quarter: 2017Q4

REPORT INFORMATION
  Report Type: Spontaneous
  Country: CA (occurrence: CA)
  Receive Date: 20171115
  Receipt Date: 20171115
  Transmission Date: 20180321
  Serious: Yes (Hospitalization, Disabling)
  Sender: FDA-Public Use
  Company Number: None

PATIENT
  Age: 48 Year
  Sex: Female
  Weight: 63 kg

DRUGS (14)
  1. COLLAGEN [Concomitant]
     Active Substance: COLLAGEN
  2. MAGNESIUM [Concomitant]
     Active Substance: MAGNESIUM
  3. CORTODERM (HYDROCORTISONE) [Suspect]
     Active Substance: HYDROCORTISONE
  4. CHASTE TREE [Concomitant]
  5. IRON [Concomitant]
     Active Substance: IRON
  6. TOPIDERM HC [Suspect]
     Active Substance: HYDROCORTISONE ACETATE
  7. CORTISONE CREAM [Concomitant]
  8. OMEGA 3 [Concomitant]
     Active Substance: OMEGA-3 FATTY ACIDS
  9. CALCIUM [Concomitant]
     Active Substance: CALCIUM
  10. CLOBETASOL [Suspect]
     Active Substance: CLOBETASOL
  11. PREDNISONE. [Suspect]
     Active Substance: PREDNISONE
     Indication: ECZEMA
     Dosage: ?          QUANTITY:1 TABLET(S);?
     Route: 048
     Dates: start: 20120805, end: 20140717
  12. HYDROCORTISONE. [Suspect]
     Active Substance: HYDROCORTISONE
     Indication: ECZEMA
     Route: 061
     Dates: start: 20120921, end: 20130620
  13. VITAMIN D [Concomitant]
     Active Substance: CHOLECALCIFEROL
  14. VITAMIN B COMPLEX [Concomitant]
     Active Substance: CYANOCOBALAMIN\DEXPANTHENOL\NIACINAMIDE\PYRIDOXINE HYDROCHLORIDE\RIBOFLAVIN 5^-PHOSPHATE SODIUM\THIAMINE HYDROCHLORIDE\VITAMIN B COMPLEX

REACTIONS (8)
  - Condition aggravated [None]
  - Withdrawal syndrome [None]
  - Drug dependence [None]
  - Muscle spasms [None]
  - Insomnia [None]
  - Weight increased [None]
  - Amenorrhoea [None]
  - Tremor [None]
